FAERS Safety Report 19718513 (Version 2)
Quarter: 2021Q4

REPORT INFORMATION
  Report Type: Report from Study
  Country: CN (occurrence: CN)
  Receive Date: 20210818
  Receipt Date: 20211006
  Transmission Date: 20220304
  Serious: Yes (Death, Hospitalization)
  Sender: FDA-Public Use
  Company Number: CN-ROCHE-2889772

PATIENT
  Age: 57 Year
  Sex: Male
  Weight: 70.9 kg

DRUGS (27)
  1. ALECTINIB [Suspect]
     Active Substance: ALECTINIB
     Indication: Lung neoplasm malignant
     Dosage: START DATE OF MOST RECENT DOSE OF STUDY DRUG PRIOR TO AE: 07/AUG/2021
     Route: 048
     Dates: start: 20160121
  2. BORAX [Concomitant]
  3. SODIUM BICARBONATE [Concomitant]
     Active Substance: SODIUM BICARBONATE
  4. FAMOTIDINE [Concomitant]
     Active Substance: FAMOTIDINE
  5. BICYCLOL [Concomitant]
     Active Substance: BICYCLOL
  6. LACTULOSE [Concomitant]
     Active Substance: LACTULOSE
  7. MONTMORILLONITE [Concomitant]
     Active Substance: MONTMORILLONITE
  8. LOPERAMIDE [Concomitant]
     Active Substance: LOPERAMIDE
  9. CALCIUM GLUCONATE [Concomitant]
     Active Substance: CALCIUM GLUCONATE
  10. DEXTROSE\SODIUM CHLORIDE [Concomitant]
     Active Substance: DEXTROSE\SODIUM CHLORIDE
  11. SODIUM BICARBONATE [Concomitant]
     Active Substance: SODIUM BICARBONATE
  12. LIDOCAINE [Concomitant]
     Active Substance: LIDOCAINE
  13. DEXAMETHASONE SODIUM PHOSPHATE [Concomitant]
     Active Substance: DEXAMETHASONE SODIUM PHOSPHATE
  14. SODIUM [Concomitant]
     Active Substance: SODIUM
  15. PIPERACILLIN SODIUM [Concomitant]
     Active Substance: PIPERACILLIN SODIUM
  16. SULFAMETHOXAZOLE [Concomitant]
     Active Substance: SULFAMETHOXAZOLE
  17. MOXIFLOXACIN [Concomitant]
     Active Substance: MOXIFLOXACIN
  18. AMPHOTERICIN B [Concomitant]
     Active Substance: AMPHOTERICIN B
  19. VORICONAZOLE [Concomitant]
     Active Substance: VORICONAZOLE
  20. VORICONAZOLE [Concomitant]
     Active Substance: VORICONAZOLE
  21. HYDROXYUREA [Concomitant]
     Active Substance: HYDROXYUREA
  22. BUDESONIDE [Concomitant]
     Active Substance: BUDESONIDE
  23. METHOXAMINE [Concomitant]
     Active Substance: METHOXAMINE
  24. DOXOFYLLINE [Concomitant]
     Active Substance: DOXOFYLLINE
  25. DIPHENHYDRAMINE [Concomitant]
     Active Substance: DIPHENHYDRAMINE
  26. CHLORPHENIRAMINE [Concomitant]
     Active Substance: CHLORPHENIRAMINE
  27. LORATADINE [Concomitant]
     Active Substance: LORATADINE

REACTIONS (1)
  - Acute myeloid leukaemia [Not Recovered/Not Resolved]

NARRATIVE: CASE EVENT DATE: 20210807
